FAERS Safety Report 19905457 (Version 1)
Quarter: 2021Q3

REPORT INFORMATION
  Report Type: Spontaneous
  Country: IT (occurrence: IT)
  Receive Date: 20210930
  Receipt Date: 20210930
  Transmission Date: 20211014
  Serious: No
  Sender: FDA-Public Use
  Company Number: IT-GW PHARMA-202109ITGW04586

PATIENT

DRUGS (5)
  1. EPIDYOLEX [Suspect]
     Active Substance: CANNABIDIOL
     Dosage: 530 MILLIGRAM, QD, 10 MG/KG/DAY
     Route: 048
     Dates: start: 2020
  2. CARBAMAZEPINE. [Concomitant]
     Active Substance: CARBAMAZEPINE
     Indication: PRODUCT USED FOR UNKNOWN INDICATION
     Dosage: 400 MILLIGRAM, QD
     Route: 065
  3. LAMOTRIGINE. [Concomitant]
     Active Substance: LAMOTRIGINE
     Indication: PRODUCT USED FOR UNKNOWN INDICATION
     Dosage: 200 MILLIGRAM, QD
     Route: 065
  4. CLOBAZAM. [Concomitant]
     Active Substance: CLOBAZAM
     Indication: PRODUCT USED FOR UNKNOWN INDICATION
     Dosage: 10 MILLIGRAM, QD
     Route: 065
  5. EPIDYOLEX [Suspect]
     Active Substance: CANNABIDIOL
     Indication: LENNOX-GASTAUT SYNDROME
     Dosage: 270 MILLIGRAM, QD, 5 MG/KG/DAY
     Route: 048
     Dates: start: 202001, end: 2020

REACTIONS (2)
  - Therapeutic response unexpected [Unknown]
  - Diarrhoea [Recovered/Resolved]
